FAERS Safety Report 15733469 (Version 1)
Quarter: 2018Q4

REPORT INFORMATION
  Report Type: Spontaneous
  Country: ES (occurrence: ES)
  Receive Date: 20181218
  Receipt Date: 20181218
  Transmission Date: 20190205
  Serious: Yes (Hospitalization)
  Sender: FDA-Public Use
  Company Number: ES-TEVA-2018-ES-987421

PATIENT
  Age: 44 Year

DRUGS (3)
  1. FLUCONAZOL (2432A) [Suspect]
     Active Substance: FLUCONAZOLE
     Indication: SKIN CANDIDA
     Dosage: 150 MG A SINGLE TAKE VO.
     Route: 048
     Dates: start: 20181023, end: 20181023
  2. YURELAX 10 MG CAPSULAS DURAS , 30 C?PSULAS [Suspect]
     Active Substance: CYCLOBENZAPRINE HYDROCHLORIDE
     Indication: NECK PAIN
     Route: 048
     Dates: start: 20181010, end: 20181028
  3. ARCOXIA [Suspect]
     Active Substance: ETORICOXIB
     Indication: NECK PAIN
     Dosage: 60 MILLIGRAM DAILY;
     Route: 048
     Dates: start: 20181010, end: 20181028

REACTIONS (3)
  - Rash pruritic [Recovered/Resolved]
  - Perivascular dermatitis [Recovered/Resolved]
  - Eosinophilia [Recovering/Resolving]

NARRATIVE: CASE EVENT DATE: 20181023
